FAERS Safety Report 11883298 (Version 1)
Quarter: 2015Q4

REPORT INFORMATION
  Report Type: Spontaneous
  Country: US (occurrence: US)
  Receive Date: 20151231
  Receipt Date: 20151231
  Transmission Date: 20160305
  Serious: No
  Sender: FDA-Public Use
  Company Number: US-TEIKOKU PHARMA USA-TPU2015-00663

PATIENT
  Sex: Female

DRUGS (3)
  1. LIDODERM [Suspect]
     Active Substance: LIDOCAINE
     Route: 061
     Dates: end: 2015
  2. LIDODERM [Suspect]
     Active Substance: LIDOCAINE
     Indication: NEURALGIA
     Route: 061
     Dates: start: 2009
  3. LIDOCAINE PATCH [Suspect]
     Active Substance: LIDOCAINE
     Indication: NEURALGIA
     Route: 061
     Dates: start: 2015

REACTIONS (2)
  - Pain [Unknown]
  - Expired product administered [Recovered/Resolved]
